FAERS Safety Report 9210821 (Version 2)
Quarter: 2013Q2

REPORT INFORMATION
  Report Type: Spontaneous
  Country: ZA (occurrence: ZA)
  Receive Date: 20130404
  Receipt Date: 20130503
  Transmission Date: 20140414
  Serious: Yes (Hospitalization, Other)
  Sender: FDA-Public Use
  Company Number: ZA-ELI_LILLY_AND_COMPANY-ZA201303008762

PATIENT
  Age: 63 Year
  Sex: Male

DRUGS (5)
  1. ALIMTA [Suspect]
     Indication: MESOTHELIOMA
     Dosage: 900 MG, CYCLE 1 AND 2
     Dates: start: 20130104
  2. ALIMTA [Suspect]
     Dosage: 1000 MG, CYCLE 3
  3. CISPLATIN [Concomitant]
     Dosage: UNK
  4. VITAMIN B12 [Concomitant]
  5. FOLIC ACID [Concomitant]
     Dosage: UNK

REACTIONS (2)
  - Loss of consciousness [Unknown]
  - Haemoglobin decreased [Recovering/Resolving]
